FAERS Safety Report 5871562-2 (Version None)
Quarter: 2008Q3

REPORT INFORMATION
  Report Type: 
  Country: None (occurrence: None)
  Receive Date: 20080905
  Receipt Date: 20080505
  Transmission Date: 20090109
  Serious: No
  Sender: FDA-Public Use
  Company Number: A0726193A

PATIENT
  Age: 90 Year
  Sex: Female

DRUGS (4)
  1. REQUIP [Suspect]
     Indication: RESTLESS LEGS SYNDROME
     Dosage: .25MG PER DAY
     Route: 048
     Dates: start: 20080425
  2. CHEMOTHERAPY [Concomitant]
  3. BLOOD PRESSURE MEDICATION [Concomitant]
  4. CYMBALTA [Concomitant]

REACTIONS (4)
  - ADVERSE EVENT [None]
  - DIZZINESS [None]
  - FATIGUE [None]
  - MENTAL IMPAIRMENT [None]
